FAERS Safety Report 6539413-0 (Version None)
Quarter: 2010Q1

REPORT INFORMATION
  Report Type: 
  Country: None (occurrence: None)
  Receive Date: 20100112
  Receipt Date: 20091228
  Transmission Date: 20100710
  Serious: Yes (Other)
  Sender: FDA-Public Use
  Company Number: 2009-04581

PATIENT
  Age: 64 Year
  Sex: Male

DRUGS (2)
  1. VELCADE [Suspect]
     Indication: MULTIPLE MYELOMA
     Dosage: 1.3 MG/M2, CYCLIC, INTRAVENOUS
     Route: 042
     Dates: start: 20051031, end: 20051110
  2. LENALIDOMIDE (LENALIDOMIDE) CAPSULE [Suspect]
     Indication: MULTIPLE MYELOMA
     Dosage: 15 MG, CYCLIC, ORAL
     Route: 048
     Dates: start: 20051031, end: 20051113

REACTIONS (1)
  - HERPES ZOSTER [None]
